FAERS Safety Report 7780670-0 (Version None)
Quarter: 2011Q3

REPORT INFORMATION
  Report Type: 
  Country: None (occurrence: None)
  Receive Date: 20110927
  Receipt Date: 20110603
  Transmission Date: 20111222
  Serious: No
  Sender: FDA-Public Use
  Company Number: US-BRISTOL-MYERS SQUIBB COMPANY-15590136

PATIENT
  Age: 62 Year
  Sex: Female
  Weight: 73 kg

DRUGS (6)
  1. AVAPRO [Suspect]
  2. HYDROCHLOROTHIAZIDE [Suspect]
  3. METFORMIN HCL [Concomitant]
  4. AMLODIPINE [Concomitant]
  5. PRAVASTATIN SODIUM [Concomitant]
  6. PLAVIX [Concomitant]

REACTIONS (1)
  - BLOOD PRESSURE INCREASED [None]
